FAERS Safety Report 25075974 (Version 2)
Quarter: 2025Q2

REPORT INFORMATION
  Report Type: Spontaneous
  Country: US (occurrence: US)
  Receive Date: 20250313
  Receipt Date: 20250619
  Transmission Date: 20250717
  Serious: No
  Sender: CALLIDITAS THERAPEUTICS AB
  Company Number: US-Calliditas-2025CAL00519

PATIENT
  Age: 66 Year
  Sex: Male

DRUGS (9)
  1. TARPEYO [Suspect]
     Active Substance: BUDESONIDE
     Indication: IgA nephropathy
     Route: 048
     Dates: start: 20241109
  2. TYLENOL [Concomitant]
     Active Substance: ACETAMINOPHEN
  3. ALLOPURINOL [Concomitant]
     Active Substance: ALLOPURINOL
  4. CLINDAMYCIN [Concomitant]
     Active Substance: CLINDAMYCIN
  5. EZETIMIBE [Concomitant]
     Active Substance: EZETIMIBE
  6. ATRASENTAN [Concomitant]
     Active Substance: ATRASENTAN
  7. LORATADINE [Concomitant]
     Active Substance: LORATADINE
  8. OMEPRAZOLE [Concomitant]
     Active Substance: OMEPRAZOLE
  9. LIPITOR [Concomitant]
     Active Substance: ATORVASTATIN CALCIUM

REACTIONS (2)
  - Peripheral swelling [Recovering/Resolving]
  - Intentional underdose [Recovered/Resolved]

NARRATIVE: CASE EVENT DATE: 20250301
